FAERS Safety Report 8621388-1 (Version None)
Quarter: 2012Q3

REPORT INFORMATION
  Report Type: 
  Country: None (occurrence: None)
  Receive Date: 20120824
  Receipt Date: 20120821
  Transmission Date: 20120928
  Serious: Yes (Other)
  Sender: FDA-Public Use
  Company Number: US-PFIZER INC-2012205108

PATIENT
  Age: 55 Year
  Sex: Female
  Weight: 79.4 kg

DRUGS (9)
  1. LUBIPROSTONE [Concomitant]
     Dosage: 224 UG, 2X/DAY
  2. LYRICA [Suspect]
     Dosage: 100 MG, 2X/DAY
     Route: 048
  3. LYRICA [Suspect]
     Dosage: 225 MG, 2X/DAY
     Route: 048
     Dates: end: 20120816
  4. LYRICA [Suspect]
     Indication: NEURALGIA
     Dosage: 50 MG, 2X/DAY
     Route: 048
  5. VALIUM [Concomitant]
     Dosage: 5 MG, 3X/DAY
  6. LYRICA [Suspect]
     Dosage: 75 MG, 2X/DAY
     Route: 048
  7. COLACE [Concomitant]
     Indication: CONSTIPATION
     Dosage: 100 MG, 2X/DAY
  8. NORCO [Concomitant]
     Dosage: 325/10 MG, 4X/DAY
  9. PRISTIQ [Concomitant]
     Dosage: 100 MG, 1X/DAY

REACTIONS (3)
  - ACTIVITIES OF DAILY LIVING IMPAIRED [None]
  - MALAISE [None]
  - NEURALGIA [None]
